FAERS Safety Report 9415572 (Version 1)
Quarter: 2013Q3

REPORT INFORMATION
  Report Type: Spontaneous
  Country: CA (occurrence: CA)
  Receive Date: 20130723
  Receipt Date: 20130723
  Transmission Date: 20140515
  Serious: Yes (Other)
  Sender: FDA-Public Use
  Company Number: CA-AMGEN-CANSP2013050130

PATIENT
  Age: 74 Year
  Sex: Female

DRUGS (1)
  1. PROLIA [Suspect]
     Indication: OSTEOPOROSIS POSTMENOPAUSAL
     Dosage: UNK UNK, Q6MO
     Dates: start: 20120511

REACTIONS (5)
  - Precancerous cells present [Unknown]
  - Gastric polyps [Unknown]
  - Abdominal lymphadenopathy [Unknown]
  - Dysphagia [Unknown]
  - Lymphadenopathy [Unknown]
